FAERS Safety Report 16867922 (Version 2)
Quarter: 2019Q4

REPORT INFORMATION
  Report Type: Spontaneous
  Country: JP (occurrence: JP)
  Receive Date: 20190930
  Receipt Date: 20191119
  Transmission Date: 20200122
  Serious: Yes (Other)
  Sender: FDA-Public Use
  Company Number: PHJP2019JP012804

PATIENT
  Age: 41 Year
  Sex: Male

DRUGS (2)
  1. TASIGNA [Suspect]
     Active Substance: NILOTINIB
     Indication: CHRONIC MYELOID LEUKAEMIA
     Dosage: 600 MG
     Route: 048
     Dates: start: 201201
  2. TASIGNA [Suspect]
     Active Substance: NILOTINIB
     Dosage: 800 MG
     Route: 065
     Dates: start: 201208

REACTIONS (5)
  - Rash [Unknown]
  - Pleural effusion [Recovered/Resolved]
  - Diabetes mellitus [Unknown]
  - Facial paralysis [Unknown]
  - Pruritus [Unknown]

NARRATIVE: CASE EVENT DATE: 201005
